FAERS Safety Report 8616347-9 (Version None)
Quarter: 2012Q3

REPORT INFORMATION
  Report Type: 
  Country: None (occurrence: None)
  Receive Date: 20120823
  Receipt Date: 20120816
  Transmission Date: 20120928
  Serious: Yes (Other)
  Sender: FDA-Public Use
  Company Number: JP-009507513-1208JPN001376

PATIENT

DRUGS (5)
  1. LIVACT [Concomitant]
     Route: 048
  2. INTERFERON BETA NOS [Suspect]
     Indication: HEPATITIS C
     Dosage: 6 MILLION IU, QD
     Route: 041
     Dates: start: 20110401
  3. URSO 250 [Concomitant]
     Route: 048
  4. REBETOL [Suspect]
     Indication: HEPATITIS C
     Dosage: 200 MG, QD
     Route: 048
     Dates: start: 20110401
  5. LOXONIN [Concomitant]

REACTIONS (1)
  - ILEAL ULCER [None]
